FAERS Safety Report 25553471 (Version 1)
Quarter: 2025Q3

REPORT INFORMATION
  Report Type: Other
  Country: CA (occurrence: CA)
  Receive Date: 20250715
  Receipt Date: 20250715
  Transmission Date: 20251020
  Serious: Yes (Hospitalization, Other)
  Sender: APOTEX
  Company Number: CA-PGRTD-001127600

PATIENT
  Age: 71 Year
  Sex: Female
  Weight: 63.8 kg

DRUGS (1)
  1. POMALIDOMIDE [Suspect]
     Active Substance: POMALIDOMIDE
     Indication: Product used for unknown indication
     Route: 065

REACTIONS (5)
  - Hepatobiliary disease [Recovered/Resolved]
  - Myelosuppression [Recovered/Resolved]
  - Blood disorder [Recovered/Resolved]
  - Pancreatitis [Recovered/Resolved]
  - Hypertransaminasaemia [Recovered/Resolved]
